FAERS Safety Report 13524369 (Version 4)
Quarter: 2017Q2

REPORT INFORMATION
  Report Type: Spontaneous
  Country: DE (occurrence: DE)
  Receive Date: 20170508
  Receipt Date: 20170601
  Transmission Date: 20170830
  Serious: Yes (Hospitalization, Other)
  Sender: FDA-Public Use
  Company Number: PHHY2017DE045602

PATIENT
  Sex: Male

DRUGS (16)
  1. PANTOZOL [Concomitant]
     Active Substance: PANTOPRAZOLE SODIUM
     Indication: PRODUCT USED FOR UNKNOWN INDICATION
     Dosage: 40 MG, QD
     Route: 048
  2. METOPROLOL. [Concomitant]
     Active Substance: METOPROLOL
     Indication: HYPERTENSION
     Dosage: 47.5 MG, QD
     Route: 048
  3. LEVOTHYROXIN [Concomitant]
     Active Substance: LEVOTHYROXINE
     Indication: PRODUCT USED FOR UNKNOWN INDICATION
     Dosage: 100 UG, QD
     Route: 048
  4. ATRIANCE [Suspect]
     Active Substance: NELARABINE
     Dosage: 3390 MG, QD
     Route: 042
     Dates: start: 20170302
  5. ATRIANCE [Suspect]
     Active Substance: NELARABINE
     Dosage: 3390 MG, QD
     Route: 042
     Dates: start: 20170306
  6. ATRIANCE [Suspect]
     Active Substance: NELARABINE
     Indication: ACUTE LYMPHOCYTIC LEUKAEMIA RECURRENT
     Dosage: 3390 MG, QD
     Route: 042
     Dates: start: 20170228, end: 20170228
  7. GRANISETRON [Concomitant]
     Active Substance: GRANISETRON
     Dosage: 2 MG, UNK
     Route: 048
     Dates: start: 20170303
  8. METHOTREXATE. [Suspect]
     Active Substance: METHOTREXATE
     Dosage: 15 MG, (ABSOLUTE)
     Route: 037
     Dates: start: 20170215
  9. MICAFUNGIN [Concomitant]
     Active Substance: MICAFUNGIN
     Indication: PRODUCT USED FOR UNKNOWN INDICATION
     Dosage: 50 MG, UNK
     Route: 042
     Dates: end: 20170324
  10. ACICLOVIR [Concomitant]
     Active Substance: ACYCLOVIR
     Indication: PRODUCT USED FOR UNKNOWN INDICATION
     Dosage: 800 MG, QD
     Route: 048
  11. GRANISETRON [Concomitant]
     Active Substance: GRANISETRON
     Dosage: 2 MG, UNK
     Route: 048
     Dates: start: 20170304
  12. METHOTREXATE. [Suspect]
     Active Substance: METHOTREXATE
     Indication: ACUTE LYMPHOCYTIC LEUKAEMIA RECURRENT
     Dosage: 15 MG, (ABSOLUTE)
     Route: 037
     Dates: start: 20170208, end: 20170208
  13. METHOTREXATE. [Suspect]
     Active Substance: METHOTREXATE
     Dosage: 15 MG, (ABSOLUTE)
     Route: 037
     Dates: start: 20170228
  14. COTRIM FORTE [Concomitant]
     Active Substance: SULFAMETHOXAZOLE\TRIMETHOPRIM
     Indication: PRODUCT USED FOR UNKNOWN INDICATION
     Dosage: 960 MG, 2 TIMES EVERY MONDAY AND ONCE EVERY FRIDAY
     Route: 048
  15. RAMIPRIL. [Concomitant]
     Active Substance: RAMIPRIL
     Indication: HYPERTENSION
     Dosage: 5 MG, QD
     Route: 048
  16. GRANISETRON [Concomitant]
     Active Substance: GRANISETRON
     Indication: PRODUCT USED FOR UNKNOWN INDICATION
     Dosage: 2 MG, UNK
     Route: 048
     Dates: start: 20170228

REACTIONS (16)
  - Disorientation [Recovered/Resolved]
  - Asthenia [Recovered/Resolved]
  - CNS ventriculitis [Recovered/Resolved]
  - Condition aggravated [Recovering/Resolving]
  - Ataxia [Unknown]
  - General physical health deterioration [Unknown]
  - Pain in extremity [Unknown]
  - Memory impairment [Recovering/Resolving]
  - Staphylococcal infection [Unknown]
  - Renal disorder [Unknown]
  - Tremor [Unknown]
  - Balance disorder [Unknown]
  - Hemiparesis [Recovered/Resolved]
  - Personality change [Recovering/Resolving]
  - Fatigue [Recovered/Resolved]
  - Arthritis [Recovered/Resolved]

NARRATIVE: CASE EVENT DATE: 201703
